FAERS Safety Report 21552249 (Version 1)
Quarter: 2022Q4

REPORT INFORMATION
  Report Type: Report from Study
  Country: US (occurrence: US)
  Receive Date: 20221104
  Receipt Date: 20221104
  Transmission Date: 20230113
  Serious: No
  Sender: FDA-Public Use
  Company Number: US-ABBVIE-4130776

PATIENT
  Age: 37 Year
  Sex: Female

DRUGS (3)
  1. ORILISSA [Suspect]
     Active Substance: ELAGOLIX SODIUM
     Indication: Endometriosis
     Route: 048
     Dates: start: 20220330
  2. Moderna [Concomitant]
     Indication: COVID-19 immunisation
     Dosage: 1 IN 1 ONCE
     Route: 030
     Dates: start: 202103, end: 202103
  3. Moderna [Concomitant]
     Indication: COVID-19 immunisation
     Dosage: 1 IN 1 ONCE
     Route: 030
     Dates: start: 202104, end: 202104

REACTIONS (1)
  - Therapeutic product effect decreased [Not Recovered/Not Resolved]

NARRATIVE: CASE EVENT DATE: 20220701
